FAERS Safety Report 16929181 (Version 1)
Quarter: 2019Q4

REPORT INFORMATION
  Report Type: Spontaneous
  Country: US (occurrence: US)
  Receive Date: 20190826
  Receipt Date: 20190826
  Transmission Date: 20200122
  Serious: No
  Sender: FDA-Public Use
  Company Number: None

PATIENT
  Age: 30 Year
  Sex: Female

DRUGS (1)
  1. BENLYSTA [Suspect]
     Active Substance: BELIMUMAB
     Dosage: ?          OTHER DOSE:10MG/KG;OTHER FREQUENCY:UNKNOWN;?
     Route: 042
     Dates: start: 2018, end: 2018

REACTIONS (2)
  - Maternal drugs affecting foetus [None]
  - Maternal exposure timing unspecified [None]

NARRATIVE: CASE EVENT DATE: 20180101
